FAERS Safety Report 21025345 (Version 8)
Quarter: 2025Q3

REPORT INFORMATION
  Report Type: Report from Study
  Country: US (occurrence: US)
  Receive Date: 20220630
  Receipt Date: 20250716
  Transmission Date: 20251021
  Serious: Yes (Death, Hospitalization, Other)
  Sender: NOVARTIS
  Company Number: NVSC2022US145660

PATIENT
  Age: 66 Year
  Sex: Male
  Weight: 98.88 kg

DRUGS (6)
  1. TABRECTA [Suspect]
     Active Substance: CAPMATINIB
     Indication: Non-small cell lung cancer metastatic
     Dosage: 400 MG, BID
     Route: 048
     Dates: start: 20220107, end: 20220822
  2. TABRECTA [Suspect]
     Active Substance: CAPMATINIB
     Route: 048
  3. TABRECTA [Suspect]
     Active Substance: CAPMATINIB
     Route: 048
     Dates: start: 20220815
  4. TABRECTA [Suspect]
     Active Substance: CAPMATINIB
     Dosage: 2 DOSAGE FORM, BID (400 MG 2X/DAY)
     Route: 048
     Dates: start: 20220816
  5. TABRECTA [Suspect]
     Active Substance: CAPMATINIB
     Dosage: 200 MG, QD
     Route: 048
  6. TABRECTA [Suspect]
     Active Substance: CAPMATINIB
     Dosage: 200 MG, BID (1 TABLET)
     Route: 048

REACTIONS (10)
  - Pleural effusion [Fatal]
  - Dyspnoea [Fatal]
  - Mobility decreased [Fatal]
  - Nausea [Recovering/Resolving]
  - Hypotension [Unknown]
  - Pulmonary congestion [Unknown]
  - Productive cough [Unknown]
  - Illness [Unknown]
  - Weight decreased [Unknown]
  - Drug intolerance [Unknown]

NARRATIVE: CASE EVENT DATE: 20220311
